FAERS Safety Report 5748721-2 (Version None)
Quarter: 2008Q2

REPORT INFORMATION
  Report Type: 
  Country: None (occurrence: None)
  Receive Date: 20080521
  Receipt Date: 20080508
  Transmission Date: 20081010
  Serious: Yes (Other)
  Sender: FDA-Public Use
  Company Number: 2008000274

PATIENT
  Age: 80 Year
  Sex: Female

DRUGS (5)
  1. MACUGEN [Suspect]
     Indication: MACULAR DEGENERATION
     Dosage: INTRA-VITREAL
     Dates: start: 20070301
  2. CALCIUM DOBESILATE (CALCIUM DOBESILATE) [Concomitant]
  3. ASCORBIC ACID [Concomitant]
  4. TROXERUTIN (TROXERUTIN) [Concomitant]
  5. ACETAZOLAMIDE [Concomitant]

REACTIONS (2)
  - BLINDNESS [None]
  - CHOROIDAL NEOVASCULARISATION [None]
